FAERS Safety Report 9610102 (Version 2)
Quarter: 2013Q4

REPORT INFORMATION
  Report Type: Spontaneous
  Country: US (occurrence: US)
  Receive Date: 20131009
  Receipt Date: 20131009
  Transmission Date: 20140711
  Serious: No
  Sender: FDA-Public Use
  Company Number: US-PURDUE-USA-2012-0096417

PATIENT
  Age: 73 Year
  Sex: Female

DRUGS (3)
  1. BUTRANS [Suspect]
     Indication: PRODUCT USED FOR UNKNOWN INDICATION
     Dosage: 5 MCG, UNK
     Route: 062
     Dates: start: 20121102, end: 20121117
  2. LORAZEPAM [Concomitant]
     Indication: INSOMNIA
  3. HYDROCODONE                        /00060002/ [Concomitant]
     Indication: PAIN
     Dosage: UNK, PRN

REACTIONS (5)
  - Vein disorder [Recovered/Resolved]
  - Headache [Recovered/Resolved]
  - Heart rate increased [Recovered/Resolved]
  - Dizziness [Recovered/Resolved]
  - Fatigue [Recovered/Resolved]
